FAERS Safety Report 5939583-9 (Version None)
Quarter: 2008Q4

REPORT INFORMATION
  Report Type: 
  Country: None (occurrence: None)
  Receive Date: 20081030
  Receipt Date: 20081020
  Transmission Date: 20090506
  Serious: Yes (Other)
  Sender: FDA-Public Use
  Company Number: TRP_05942_2008

PATIENT
  Sex: Female

DRUGS (5)
  1. RIBASPHERE [Suspect]
     Indication: HEPATITIS C
     Dosage: 1200 MG ORAL
     Route: 048
     Dates: start: 20080919
  2. PEGASYS [Suspect]
     Indication: HEPATITIS C
     Dosage: 180 UG 1X/WEEK SUBCUTANEOUS
     Route: 058
     Dates: start: 20080919
  3. SPIRONOLACTONE [Concomitant]
  4. INDERAL /00030001/ [Concomitant]
  5. LASIX [Concomitant]

REACTIONS (5)
  - BLOOD PRESSURE DECREASED [None]
  - FATIGUE [None]
  - FLANK PAIN [None]
  - INJECTION SITE RASH [None]
  - RASH MACULAR [None]
